FAERS Safety Report 23066457 (Version 8)
Quarter: 2024Q2

REPORT INFORMATION
  Report Type: Report from Study
  Country: GB (occurrence: GB)
  Receive Date: 20231015
  Receipt Date: 20240531
  Transmission Date: 20240716
  Serious: Yes (Hospitalization, Other)
  Sender: FDA-Public Use
  Company Number: GB-JNJFOC-20230926199

PATIENT
  Age: 74 Year
  Sex: Male

DRUGS (11)
  1. ZOMETA [Suspect]
     Active Substance: ZOLEDRONIC ACID
     Indication: Bone disorder
     Dosage: UNK
     Route: 042
  2. ZOMETA [Suspect]
     Active Substance: ZOLEDRONIC ACID
     Indication: Prophylaxis
  3. APALUTAMIDE [Suspect]
     Active Substance: APALUTAMIDE
     Indication: Prostate cancer
     Dosage: 4 DOSAGE FORM, QD (240.0 MG, 1 DAY, 1680.0 MG)
     Route: 048
     Dates: start: 20230825
  4. APALUTAMIDE [Suspect]
     Active Substance: APALUTAMIDE
     Dosage: 180.0 MG, 1 DAY, 1260.0 MG
     Route: 065
     Dates: start: 20230825, end: 20240501
  5. ZOLEDRONIC ACID [Suspect]
     Active Substance: ZOLEDRONIC ACID
     Indication: Prophylaxis
     Dosage: UNK
     Route: 042
  6. AMLODIPINE [Concomitant]
     Active Substance: AMLODIPINE BESYLATE
     Indication: Hypertension
     Dosage: UNK
     Route: 065
  7. MORPHINE [Concomitant]
     Active Substance: MORPHINE
     Indication: Pain
     Dosage: UNK
     Route: 065
  8. ASPIRIN [Concomitant]
     Active Substance: ASPIRIN
     Indication: Cardiac disorder
     Dosage: UNK
     Route: 065
  9. LACIDIPINE [Concomitant]
     Active Substance: LACIDIPINE
     Indication: Hypertension
     Dosage: UNK
     Route: 065
  10. LOSARTAN [Concomitant]
     Active Substance: LOSARTAN
     Indication: Hypertension
     Dosage: UNK
     Route: 065
  11. RANOLAZINE [Concomitant]
     Active Substance: RANOLAZINE
     Indication: Hypertension
     Dosage: UNK
     Route: 065

REACTIONS (23)
  - Pelvic pain [Not Recovered/Not Resolved]
  - Weight decreased [Unknown]
  - Incontinence [Not Recovered/Not Resolved]
  - Pain in extremity [Not Recovered/Not Resolved]
  - Change of bowel habit [Recovering/Resolving]
  - Arthralgia [Recovering/Resolving]
  - Chest pain [Recovered/Resolved]
  - Peripheral swelling [Recovered/Resolved]
  - Blood potassium increased [Recovered/Resolved]
  - Prostatic specific antigen increased [Not Recovered/Not Resolved]
  - Dizziness [Not Recovered/Not Resolved]
  - Constipation [Recovering/Resolving]
  - Bladder disorder [Recovering/Resolving]
  - Spinal cord compression [Unknown]
  - Mobility decreased [Not Recovered/Not Resolved]
  - Peripheral swelling [Recovered/Resolved]
  - Decreased appetite [Unknown]
  - Dysgeusia [Recovering/Resolving]
  - Blood glucose fluctuation [Unknown]
  - Hypoaesthesia [Unknown]
  - Urinary tract infection [Not Recovered/Not Resolved]
  - Blood potassium increased [Recovered/Resolved]
  - Blood test abnormal [Recovering/Resolving]

NARRATIVE: CASE EVENT DATE: 20230901
